FAERS Safety Report 25573720 (Version 6)
Quarter: 2025Q3

REPORT INFORMATION
  Report Type: Spontaneous
  Country: CO (occurrence: CO)
  Receive Date: 20250717
  Receipt Date: 20250903
  Transmission Date: 20251020
  Serious: No
  Sender: PFIZER
  Company Number: CO-PFIZER INC-PV202500084988

PATIENT
  Age: 14 Year
  Sex: Male

DRUGS (1)
  1. GENOTROPIN [Suspect]
     Active Substance: SOMATROPIN
     Indication: Short stature
     Dosage: 1.8 MG, DAILY

REACTIONS (4)
  - Device leakage [Recovered/Resolved]
  - Wrong technique in device usage process [Recovered/Resolved]
  - Bone pain [Not Recovered/Not Resolved]
  - Off label use [Unknown]
